FAERS Safety Report 10196427 (Version 2)
Quarter: 2014Q2

REPORT INFORMATION
  Report Type: Report from Study
  Country: CA (occurrence: CA)
  Receive Date: 20140527
  Receipt Date: 20140627
  Transmission Date: 20141212
  Serious: Yes (Other)
  Sender: FDA-Public Use
  Company Number: CA-JNJFOC-20140513208

PATIENT
  Age: 62 Year
  Sex: Male
  Weight: 68.5 kg

DRUGS (10)
  1. REMICADE [Suspect]
     Indication: CROHN^S DISEASE
     Route: 042
     Dates: start: 20130513
  2. CLOPIDOGREL [Concomitant]
     Route: 065
  3. RAMIPRIL [Concomitant]
     Route: 065
  4. BISOPROLOL [Concomitant]
     Route: 065
  5. ATORVASTATIN [Concomitant]
     Route: 065
  6. CIPRO [Concomitant]
     Route: 065
  7. ASA [Concomitant]
     Route: 065
  8. CIALIS [Concomitant]
     Route: 065
  9. MICARDIS [Concomitant]
     Route: 065
  10. IMURAN [Concomitant]
     Route: 065

REACTIONS (3)
  - Anal fistula [Not Recovered/Not Resolved]
  - Fistula [Unknown]
  - Rash erythematous [Recovering/Resolving]
